FAERS Safety Report 19044321 (Version 1)
Quarter: 2021Q1

REPORT INFORMATION
  Report Type: Report from Study
  Country: TR (occurrence: TR)
  Receive Date: 20210323
  Receipt Date: 20210323
  Transmission Date: 20210420
  Serious: Yes (Death)
  Sender: FDA-Public Use
  Company Number: TR-PFIZER INC-2021301217

PATIENT
  Age: 10 Day
  Sex: Male

DRUGS (3)
  1. ACTINOMYCIN D [Suspect]
     Active Substance: DACTINOMYCIN
     Indication: FIBROSARCOMA
     Dosage: 15 MCG/KG, CYCLIC (DAY 1?5)
  2. VINCRISTINE SULFATE. [Suspect]
     Active Substance: VINCRISTINE SULFATE
     Indication: FIBROSARCOMA
     Dosage: 0.06 MG/KG, CYCLIC (DAYS 1 AND 5)
  3. CYCLOPHOSPHAMIDE. [Suspect]
     Active Substance: CYCLOPHOSPHAMIDE
     Indication: FIBROSARCOMA
     Dosage: 10 MG/KG, CYCLIC, (DAY 1?3)

REACTIONS (1)
  - Venoocclusive liver disease [Fatal]
